FAERS Safety Report 20966957 (Version 1)
Quarter: 2022Q2

REPORT INFORMATION
  Report Type: Spontaneous
  Country: FR (occurrence: FR)
  Receive Date: 20220616
  Receipt Date: 20220616
  Transmission Date: 20220720
  Serious: Yes (Hospitalization, Other)
  Sender: FDA-Public Use
  Company Number: None

PATIENT
  Age: 75 Year
  Sex: Male

DRUGS (1)
  1. EYLEA [Suspect]
     Active Substance: AFLIBERCEPT
     Indication: Age-related macular degeneration
     Dosage: 1 DF, SOLUTION FOR INJECTION, STRENGTH: 40 MG/ML
     Route: 031
     Dates: start: 20161115, end: 20220329

REACTIONS (1)
  - Necrotising scleritis [Recovering/Resolving]

NARRATIVE: CASE EVENT DATE: 20220401
